FAERS Safety Report 5551379-9 (Version None)
Quarter: 2007Q4

REPORT INFORMATION
  Report Type: 
  Country: None (occurrence: None)
  Receive Date: 20071129
  Receipt Date: 20070301
  Transmission Date: 20080405
  Serious: Yes (Other)
  Sender: FDA-Public Use
  Company Number: 310020K07USA

PATIENT
  Age: 34 Year
  Sex: Female

DRUGS (4)
  1. GONAL-F [Suspect]
     Indication: INFERTILITY FEMALE
     Dosage: 300 IU, 1 IN 1 DAYS, SUBCUTANEOUS)
     Route: 058
     Dates: start: 20070101, end: 20070201
  2. LUPRON [Suspect]
     Dosage: 10 OTHER; 5 OTHER
     Dates: start: 20070101, end: 20070101
  3. LUPRON [Suspect]
     Dosage: 10 OTHER; 5 OTHER
     Dates: start: 20070101, end: 20070201
  4. OVIDREL [Suspect]
     Indication: INFERTILITY FEMALE
     Dosage: 250 MCG, ONCE
     Dates: start: 20070213, end: 20070213

REACTIONS (5)
  - ASCITES [None]
  - DIARRHOEA [None]
  - OVARIAN ENLARGEMENT [None]
  - OVARIAN HYPERSTIMULATION SYNDROME [None]
  - WEIGHT INCREASED [None]
